FAERS Safety Report 6671310-2 (Version None)
Quarter: 2010Q2

REPORT INFORMATION
  Report Type: 
  Country: None (occurrence: None)
  Receive Date: 20100406
  Receipt Date: 20100406
  Transmission Date: 20101027
  Serious: Yes (Hospitalization)
  Sender: FDA-Public Use
  Company Number: None

PATIENT
  Age: 87 Year
  Sex: Female
  Weight: 51.27 kg

DRUGS (9)
  1. CYTARABIN 20MG/M2 [Suspect]
     Indication: ACUTE MYELOID LEUKAEMIA
     Dosage: 31.2 MG SC
     Route: 058
     Dates: start: 20091227, end: 20100303
  2. G-CSF 300 MG DAY [Suspect]
     Indication: ACUTE MYELOID LEUKAEMIA
     Dosage: 300MG SC DAY 1-5 EVERY 28 DAYS
     Route: 058
     Dates: start: 20100329, end: 20100330
  3. DECITABINE 20 MG/M2 DAY [Suspect]
     Indication: ACUTE MYELOID LEUKAEMIA
     Dosage: DAY 1-5 EVERY 28 DAYS ;  31.2 MG IV DAILY D1-5
     Route: 042
     Dates: start: 20100227, end: 20100303
  4. DECITABINE 20 MG/M2 DAY [Suspect]
     Indication: ACUTE MYELOID LEUKAEMIA
     Dosage: DAY 1-5 EVERY 28 DAYS ;  31.2 MG IV DAILY D1-5
     Route: 042
     Dates: start: 20100329, end: 20100330
  5. PROPRANOLOL [Concomitant]
  6. PRILOSEC [Concomitant]
  7. REGLAN [Concomitant]
  8. POTASSIUM CHLORIDE [Concomitant]
  9. VORICONIZOLE [Concomitant]

REACTIONS (7)
  - CARDIAC FAILURE CONGESTIVE [None]
  - DYSPNOEA [None]
  - FLUID OVERLOAD [None]
  - FUNGAL INFECTION [None]
  - HYPOXIA [None]
  - PLEURAL EFFUSION [None]
  - THROMBOCYTOPENIA [None]
